FAERS Safety Report 13269612 (Version 1)
Quarter: 2017Q1

REPORT INFORMATION
  Report Type: Spontaneous
  Country: AU (occurrence: AU)
  Receive Date: 20170224
  Receipt Date: 20170224
  Transmission Date: 20170428
  Serious: Yes (Death)
  Sender: FDA-Public Use
  Company Number: AU-MUNDIPHARMA DS AND PHARMACOVIGILANCE-GBR-2017-0043690

PATIENT
  Age: 87 Year
  Sex: Female

DRUGS (13)
  1. ACTIQ [Suspect]
     Active Substance: FENTANYL CITRATE
     Indication: PAIN
     Dosage: UNK
     Route: 065
  2. METOPROLOL. [Concomitant]
     Active Substance: METOPROLOL
  3. DIURETICS [Concomitant]
     Active Substance: UNSPECIFIED INGREDIENT
  4. UNSPECIFIED KIDNEY MEDICATIONS [Concomitant]
     Active Substance: UNSPECIFIED INGREDIENT
  5. FENTANYL. [Suspect]
     Active Substance: FENTANYL
     Indication: PAIN
     Dosage: 25 MCG, UNK
     Route: 062
  6. UNSPECIFIED LUNG MEDICATIONS [Concomitant]
     Active Substance: UNSPECIFIED INGREDIENT
  7. OXYCONTIN [Suspect]
     Active Substance: OXYCODONE HYDROCHLORIDE
     Indication: PAIN
     Dosage: UNK
     Route: 065
  8. ORDINE [Suspect]
     Active Substance: MORPHINE
     Indication: PAIN
     Dosage: 5 ML OR EVEN POSSIBLY THE WHOLE OF THE SYRINGE
     Route: 048
     Dates: start: 20140716
  9. ORDINE [Suspect]
     Active Substance: MORPHINE
     Dosage: 1-2ML, TID
     Route: 048
     Dates: start: 20140715
  10. ENDONE [Suspect]
     Active Substance: OXYCODONE HYDROCHLORIDE
     Indication: PAIN
     Dosage: 5MG (HALF TO ONE TABLET TWICE DAILY)
     Route: 065
  11. WARFARIN [Concomitant]
     Active Substance: WARFARIN
  12. UNSPECIFIED HEART MEDICATIONS [Concomitant]
     Active Substance: UNSPECIFIED INGREDIENT
  13. PARACETAMOL [Concomitant]
     Active Substance: ACETAMINOPHEN

REACTIONS (9)
  - Cough [Fatal]
  - Respiratory depression [Fatal]
  - Pulse absent [Fatal]
  - Homicide [Fatal]
  - Vomiting [Fatal]
  - Intentional overdose [Fatal]
  - Dyspnoea [Fatal]
  - Agitation [Fatal]
  - Toxicity to various agents [Fatal]

NARRATIVE: CASE EVENT DATE: 20140716
